FAERS Safety Report 7725449-0 (Version None)
Quarter: 2011Q3

REPORT INFORMATION
  Report Type: 
  Country: None (occurrence: None)
  Receive Date: 20110902
  Receipt Date: 20110823
  Transmission Date: 20111222
  Serious: Yes (Other)
  Sender: FDA-Public Use
  Company Number: US-RANBAXY-2011US-45951

PATIENT

DRUGS (2)
  1. NUVARING [Concomitant]
     Indication: CONTRACEPTION
     Dosage: UNK
     Route: 065
  2. ISOTRETINOIN [Suspect]
     Indication: PRODUCT USED FOR UNKNOWN INDICATION
     Dosage: 30 MG, BID
     Route: 048
     Dates: start: 20060327

REACTIONS (1)
  - BENIGN HYDATIDIFORM MOLE [None]
